FAERS Safety Report 7302986-4 (Version None)
Quarter: 2011Q1

REPORT INFORMATION
  Report Type: 
  Country: None (occurrence: None)
  Receive Date: 20110220
  Receipt Date: 20110207
  Transmission Date: 20110831
  Serious: Yes (Hospitalization)
  Sender: FDA-Public Use
  Company Number: AU-MYLANLABS-2011S1002477

PATIENT
  Age: 61 Year
  Sex: Female

DRUGS (1)
  1. BACLOFEN [Suspect]
     Indication: SUBSTANCE ABUSE
     Dosage: AT LEAST 75MG DAILY
     Route: 065

REACTIONS (8)
  - HALLUCINATION [None]
  - DRUG ABUSE [None]
  - DELIRIUM [None]
  - DRUG WITHDRAWAL SYNDROME [None]
  - INSOMNIA [None]
  - AGITATION [None]
  - CONFUSIONAL STATE [None]
  - DISORIENTATION [None]
